FAERS Safety Report 7708521-0 (Version None)
Quarter: 2011Q3

REPORT INFORMATION
  Report Type: 
  Country: None (occurrence: None)
  Receive Date: 20110825
  Receipt Date: 20110808
  Transmission Date: 20111222
  Serious: Yes (Hospitalization)
  Sender: FDA-Public Use
  Company Number: US-PFIZER INC-2011195181

PATIENT
  Sex: Male
  Weight: 114.29 kg

DRUGS (3)
  1. CEFPODOXIME PROXETIL [Suspect]
  2. LEVAQUIN [Suspect]
  3. BENDAMUSTINE HYDROCHLORIDE [Suspect]
     Indication: LYMPHOMA
     Dosage: 90 MG/M2 OR 221 MG EVERY 21 DAYS
     Route: 042
     Dates: start: 20100405

REACTIONS (2)
  - CHRONIC GRANULOMATOUS DISEASE [None]
  - BLADDER CANCER [None]
